FAERS Safety Report 11628784 (Version 5)
Quarter: 2015Q4

REPORT INFORMATION
  Report Type: Spontaneous
  Country: JP (occurrence: JP)
  Receive Date: 20151014
  Receipt Date: 20151210
  Transmission Date: 20160304
  Serious: Yes (Hospitalization, Other)
  Sender: FDA-Public Use
  Company Number: JP-PFIZER INC-2015282494

PATIENT
  Age: 75 Year
  Sex: Male
  Weight: 57.4 kg

DRUGS (8)
  1. MAGLAX [Concomitant]
     Active Substance: MAGNESIUM OXIDE
     Dosage: UNK
  2. NORVASC [Suspect]
     Active Substance: AMLODIPINE BESYLATE
     Indication: HYPERTENSION
     Dosage: 5 MG, 2X/DAY
     Route: 048
     Dates: start: 20150813
  3. GLIMEPIRIDE. [Concomitant]
     Active Substance: GLIMEPIRIDE
     Dosage: UNK
  4. FAMOTIDINE. [Concomitant]
     Active Substance: FAMOTIDINE
     Dosage: UNK
  5. TEOLONG [Concomitant]
     Dosage: UNK
  6. LEVOFLOXACIN. [Concomitant]
     Active Substance: LEVOFLOXACIN
     Dosage: UNK
  7. SENNOSIDE /00571901/ [Concomitant]
     Active Substance: SENNOSIDES A AND B
     Dosage: UNK
  8. BLOPRESS [Concomitant]
     Active Substance: CANDESARTAN CILEXETIL
     Dosage: UNK

REACTIONS (3)
  - Neurogenic bladder [Not Recovered/Not Resolved]
  - Aortic aneurysm [Unknown]
  - Change of bowel habit [Unknown]

NARRATIVE: CASE EVENT DATE: 2015
